FAERS Safety Report 9154153 (Version 1)
Quarter: 2013Q1

REPORT INFORMATION
  Report Type: Spontaneous
  Country: DE (occurrence: DE)
  Receive Date: 20130311
  Receipt Date: 20130311
  Transmission Date: 20140127
  Serious: Yes (Hospitalization, Other)
  Sender: FDA-Public Use
  Company Number: DE-JNJFOC-20130304117

PATIENT
  Age: 42 Year
  Sex: Female

DRUGS (2)
  1. INFLIXIMAB, RECOMBINANT [Suspect]
     Indication: AUTOIMMUNE HEPATITIS
     Dosage: AT 0, 2 AND AFTER 6 WEEKS OF INITIAL INFUSION AND THEREAFTER EVERY FOUR TO EIGHT WEEKS
     Route: 042
  2. PREDNISOLONE [Suspect]
     Indication: AUTOIMMUNE HEPATITIS
     Route: 065

REACTIONS (3)
  - Oral herpes [Unknown]
  - Pneumonia [Unknown]
  - Off label use [Unknown]
